FAERS Safety Report 8776228 (Version 2)
Quarter: 2012Q4

REPORT INFORMATION
  Report Type: 
  Country: JP (occurrence: JP)
  Receive Date: 20120910
  Receipt Date: 20120925
  Transmission Date: 20130627
  Serious: Yes (Other)
  Sender: FDA-Public Use
  Company Number: JP-EISAI INC-E2090-02290-SPO-JP

PATIENT
  Age: 23 Year
  Sex: Female

DRUGS (7)
  1. EXCEGRAN [Suspect]
     Indication: DRUG USE FOR UNKNOWN INDICATION
     Dosage: unknown
     Route: 048
     Dates: end: 2009
  2. MIDAZOLAM [Concomitant]
     Dosage: unknown
     Dates: end: 2009
  3. PREDNISOLONE [Concomitant]
     Dosage: 50 mg/day
     Dates: end: 2009
  4. PREDNISOLONE [Concomitant]
     Dosage: tapered down (dose unknown)
     Dates: start: 2009
  5. ACICLOVIR [Concomitant]
     Dosage: 1500 mg/day
  6. MEROPENEM HYDRATE [Concomitant]
     Dosage: unknown
  7. PHENYTOIN [Concomitant]

REACTIONS (2)
  - Drug-induced liver injury [Unknown]
  - Toxic skin eruption [Unknown]
